FAERS Safety Report 8500455-7 (Version None)
Quarter: 2012Q3

REPORT INFORMATION
  Report Type: 
  Country: None (occurrence: None)
  Receive Date: 20120710
  Receipt Date: 20120703
  Transmission Date: 20120928
  Serious: Yes (Other)
  Sender: FDA-Public Use
  Company Number: SI-GLAXOSMITHKLINE-B0812774A

PATIENT
  Age: 43 Year
  Sex: Female

DRUGS (1)
  1. IMIGRAN SPRINT [Suspect]
     Indication: MIGRAINE
     Route: 065
     Dates: start: 20070101

REACTIONS (5)
  - AGGRESSION [None]
  - DYSPNOEA [None]
  - ARRHYTHMIA [None]
  - FEAR [None]
  - AFFECT LABILITY [None]
